FAERS Safety Report 7744779-X (Version None)
Quarter: 2011Q3

REPORT INFORMATION
  Report Type: 
  Country: None (occurrence: None)
  Receive Date: 20110912
  Receipt Date: 20110912
  Transmission Date: 20111222
  Serious: Yes (Hospitalization)
  Sender: FDA-Public Use
  Company Number: None

PATIENT
  Sex: Female
  Weight: 906.27 kg

DRUGS (2)
  1. CARBOPLATIN [Suspect]
     Indication: LUNG NEOPLASM MALIGNANT
     Dosage: AUC 5
     Route: 041
     Dates: start: 20110713, end: 20110831
  2. PACLITAXEL [Concomitant]
     Indication: LUNG NEOPLASM MALIGNANT
     Dosage: 150 MG/ M2
     Route: 041
     Dates: start: 20110713, end: 20110831

REACTIONS (3)
  - NAUSEA [None]
  - VOMITING [None]
  - PARANASAL SINUS HYPERSECRETION [None]
